FAERS Safety Report 7881148-6 (Version None)
Quarter: 2011Q4

REPORT INFORMATION
  Report Type: 
  Country: None (occurrence: None)
  Receive Date: 20111101
  Receipt Date: 20110606
  Transmission Date: 20120403
  Serious: No
  Sender: FDA-Public Use
  Company Number: US-AMGEN-USASP2011029111

PATIENT
  Age: 56 Year
  Sex: Female

DRUGS (6)
  1. PREDNISONE [Concomitant]
  2. HUMIRA [Concomitant]
     Dosage: UNK
     Dates: start: 20110201
  3. LEFLUNOMIDE [Concomitant]
  4. CELECOXIB [Concomitant]
  5. ENBREL [Suspect]
     Indication: RHEUMATOID ARTHRITIS
     Dosage: UNK
     Dates: start: 20090101, end: 20101201
  6. ZOLPIDEM TARTRATE [Concomitant]
     Route: 048

REACTIONS (6)
  - DYSPHONIA [None]
  - INJECTION SITE PRURITUS [None]
  - BACK PAIN [None]
  - INJECTION SITE ERYTHEMA [None]
  - INJECTION SITE INDURATION [None]
  - INJECTION SITE WARMTH [None]
